FAERS Safety Report 16043121 (Version 1)
Quarter: 2019Q1

REPORT INFORMATION
  Report Type: Report from Study
  Country: FR (occurrence: FR)
  Receive Date: 20190306
  Receipt Date: 20190306
  Transmission Date: 20190418
  Serious: Yes (Other)
  Sender: FDA-Public Use
  Company Number: FR-PROVELL PHARMACEUTICALS-2063616

PATIENT
  Sex: Female

DRUGS (4)
  1. EUTHYROX [Suspect]
     Active Substance: LEVOTHYROXINE SODIUM
     Dates: start: 201811
  2. EUTHYROX [Suspect]
     Active Substance: LEVOTHYROXINE SODIUM
     Dates: start: 20190117
  3. EUTHYROX [Suspect]
     Active Substance: LEVOTHYROXINE SODIUM
     Indication: POST PROCEDURAL HYPOTHYROIDISM
     Dates: start: 201809
  4. EUTHYROX [Suspect]
     Active Substance: LEVOTHYROXINE SODIUM
     Dates: start: 201902

REACTIONS (14)
  - Fatigue [None]
  - Tearfulness [None]
  - Depressed mood [None]
  - Tinnitus [None]
  - Poisoning [None]
  - Psychiatric symptom [None]
  - Fear [None]
  - Syncope [None]
  - Loss of consciousness [None]
  - Blood pressure decreased [None]
  - Merycism [None]
  - Intentional product use issue [None]
  - Tetany [None]
  - Feeling abnormal [None]

NARRATIVE: CASE EVENT DATE: 201812
